FAERS Safety Report 8827674 (Version 1)
Quarter: 2012Q4

REPORT INFORMATION
  Report Type: 
  Country: FR (occurrence: FR)
  Receive Date: 20121005
  Receipt Date: 20121005
  Transmission Date: 20130627
  Serious: Yes (Other)
  Sender: FDA-Public Use
  Company Number: PHHY2012FR086813

PATIENT

DRUGS (2)
  1. TASIGNA [Suspect]
     Indication: CHRONIC MYELOID LEUKAEMIA
     Dosage: 200 mg, UNK
     Route: 048
     Dates: start: 20120330
  2. OXYCONTIN [Concomitant]

REACTIONS (8)
  - Blood uric acid increased [Unknown]
  - Arthropathy [Unknown]
  - Hypersomnia [Unknown]
  - Arthralgia [Unknown]
  - Fatigue [Unknown]
  - Blood creatine phosphokinase increased [Unknown]
  - Pruritus [Unknown]
  - Abdominal pain upper [Unknown]
